FAERS Safety Report 20746884 (Version 1)
Quarter: 2022Q2

REPORT INFORMATION
  Report Type: Spontaneous
  Country: US (occurrence: US)
  Receive Date: 20220425
  Receipt Date: 20220425
  Transmission Date: 20220721
  Serious: No
  Sender: FDA-Public Use
  Company Number: US-PFIZER INC-2018157035

PATIENT
  Age: 41 Year
  Sex: Male

DRUGS (3)
  1. LYRICA [Suspect]
     Active Substance: PREGABALIN
     Indication: Diabetic autonomic neuropathy
     Dosage: 200 MG, 3X/DAY
     Route: 048
     Dates: start: 20181022
  2. LYRICA [Suspect]
     Active Substance: PREGABALIN
     Indication: Type 2 diabetes mellitus
     Dosage: 200 MG, 3X/DAY
     Route: 048
     Dates: start: 20181220
  3. LYRICA [Suspect]
     Active Substance: PREGABALIN
     Dosage: 200 MG, 3X/DAY
     Route: 048
     Dates: start: 20191220

REACTIONS (2)
  - Off label use [Unknown]
  - Discomfort [Unknown]
